FAERS Safety Report 4993821-8 (Version None)
Quarter: 2006Q2

REPORT INFORMATION
  Report Type: 
  Country: None (occurrence: None)
  Receive Date: 20060503
  Receipt Date: 20060418
  Transmission Date: 20061013
  Serious: Yes (Death, Life-Threatening, Hospitalization, Other)
  Sender: FDA-Public Use
  Company Number: BE200602002031

PATIENT
  Age: 17 Year
  Sex: Female

DRUGS (1)
  1. OLANZAPINE [Suspect]
     Indication: SELF MUTILATION
     Dosage: ORAL
     Route: 048
     Dates: start: 20000101

REACTIONS (4)
  - COMA [None]
  - GASTRIC HAEMORRHAGE [None]
  - PNEUMONIA ASPIRATION [None]
  - PYREXIA [None]
